FAERS Safety Report 23470119 (Version 1)
Quarter: 2024Q1

REPORT INFORMATION
  Report Type: Spontaneous
  Country: FR (occurrence: FR)
  Receive Date: 20240202
  Receipt Date: 20240202
  Transmission Date: 20240410
  Serious: Yes (Other)
  Sender: FDA-Public Use
  Company Number: None

PATIENT
  Age: 83 Year
  Sex: Female

DRUGS (2)
  1. RIFAMPIN [Suspect]
     Active Substance: RIFAMPIN
     Indication: Superinfection bacterial
     Dosage: 1 DF, BID
     Route: 042
     Dates: start: 20231222
  2. BACTRIM [Suspect]
     Active Substance: SULFAMETHOXAZOLE\TRIMETHOPRIM
     Indication: Superinfection bacterial
     Dosage: 2 DF, BID
     Route: 042
     Dates: start: 20231222

REACTIONS (2)
  - Rash maculo-papular [Unknown]
  - Pyrexia [Unknown]

NARRATIVE: CASE EVENT DATE: 20240110
